FAERS Safety Report 5286516-7 (Version None)
Quarter: 2007Q1

REPORT INFORMATION
  Report Type: 
  Country: None (occurrence: None)
  Receive Date: 20070104
  Receipt Date: 20060905
  Transmission Date: 20070707
  Serious: No
  Sender: FDA-Public Use
  Company Number: BDI-008611

PATIENT
  Age: 63 Year
  Sex: Male
  Weight: 77 kg

DRUGS (2)
  1. MULTIHANCE [Suspect]
     Indication: HYPOAESTHESIA FACIAL
     Dosage: IV
     Route: 042
     Dates: start: 20060830, end: 20060830
  2. MULTIHANCE [Suspect]
     Indication: NUCLEAR MAGNETIC RESONANCE IMAGING
     Dosage: IV
     Route: 042
     Dates: start: 20060830, end: 20060830

REACTIONS (1)
  - HYPERSENSITIVITY [None]
